FAERS Safety Report 4735823-2 (Version None)
Quarter: 2005Q3

REPORT INFORMATION
  Report Type: 
  Country: None (occurrence: None)
  Receive Date: 20050721
  Receipt Date: 20050523
  Transmission Date: 20060218
  Serious: No
  Sender: FDA-Public Use
  Company Number: 2005SP001044

PATIENT
  Age: 68 Year
  Sex: Female
  Weight: 54.4316 kg

DRUGS (5)
  1. LUNESTA [Suspect]
     Indication: INSOMNIA
     Dosage: 1-2 MG;HS;ORAL
     Route: 048
     Dates: start: 20050509, end: 20050510
  2. LUNESTA [Suspect]
     Indication: INSOMNIA
     Dosage: 1-2 MG;HS;ORAL
     Route: 048
     Dates: start: 20050510, end: 20050516
  3. SYNTHROID [Concomitant]
  4. ZOCOR [Concomitant]
  5. ZESTORETIC [Concomitant]

REACTIONS (4)
  - BREAST ENGORGEMENT [None]
  - BREAST TENDERNESS [None]
  - DRUG INEFFECTIVE [None]
  - INSOMNIA [None]
